FAERS Safety Report 9301406 (Version 1)
Quarter: 2013Q2

REPORT INFORMATION
  Report Type: Report from Study
  Country: US (occurrence: US)
  Receive Date: 20130521
  Receipt Date: 20130521
  Transmission Date: 20140414
  Serious: Yes (Other)
  Sender: FDA-Public Use
  Company Number: US-ABBOTT-13P-163-1089641-00

PATIENT
  Sex: Female

DRUGS (2)
  1. CREON [Suspect]
     Indication: PANCREATIC INSUFFICIENCY
     Dosage: 2 CAPSULES WITH EACH MEAL
  2. CREON [Suspect]
     Dosage: 3 CAPSULES WITH EACH MEAL

REACTIONS (5)
  - Pancreatolithiasis [Unknown]
  - Pain [Unknown]
  - Dyspepsia [Unknown]
  - Dyspepsia [Unknown]
  - Vomiting [Unknown]
